FAERS Safety Report 19583610 (Version 1)
Quarter: 2021Q3

REPORT INFORMATION
  Report Type: Spontaneous
  Country: US (occurrence: US)
  Receive Date: 20210720
  Receipt Date: 20210720
  Transmission Date: 20211014
  Serious: Yes (Hospitalization)
  Sender: FDA-Public Use
  Company Number: None

PATIENT
  Age: 59 Year
  Sex: Male
  Weight: 86.1 kg

DRUGS (1)
  1. CISPLATIN. [Suspect]
     Active Substance: CISPLATIN
     Indication: PRODUCT USED FOR UNKNOWN INDICATION
     Dates: end: 20210707

REACTIONS (5)
  - Facial pain [None]
  - Abscess oral [None]
  - Condition aggravated [None]
  - Purulent discharge [None]
  - Swelling face [None]

NARRATIVE: CASE EVENT DATE: 20210712
